FAERS Safety Report 6108615-X (Version None)
Quarter: 2009Q1

REPORT INFORMATION
  Report Type: 
  Country: None (occurrence: None)
  Receive Date: 20090305
  Receipt Date: 20090224
  Transmission Date: 20090719
  Serious: Yes (Disabling)
  Sender: FDA-Public Use
  Company Number: OSCN-NO-0902S-0122

PATIENT
  Age: 26 Year
  Sex: Male
  Weight: 50 kg

DRUGS (6)
  1. OMNISCAN [Suspect]
     Indication: RENAL TRANSPLANT
     Dosage: 10 ML, SINGLE DOSE, I.V., SINGLE DOSE, I.V.
     Route: 042
     Dates: start: 20020402, end: 20020402
  2. OMNISCAN [Suspect]
     Indication: RENAL TRANSPLANT
     Dosage: 10 ML, SINGLE DOSE, I.V., SINGLE DOSE, I.V.
     Route: 042
     Dates: start: 20020603, end: 20020603
  3. EPOETIN BETA [Concomitant]
  4. ATENOLOL [Concomitant]
  5. NIFEDIPINE [Concomitant]
  6. LOSARTAN [Concomitant]

REACTIONS (1)
  - NEPHROGENIC SYSTEMIC FIBROSIS [None]
